FAERS Safety Report 14992569 (Version 1)
Quarter: 2018Q2

REPORT INFORMATION
  Report Type: Spontaneous
  Country: DE (occurrence: DE)
  Receive Date: 20180609
  Receipt Date: 20180609
  Transmission Date: 20180711
  Serious: Yes (Hospitalization)
  Sender: FDA-Public Use
  Company Number: DE-TEVA-2018-DE-903715

PATIENT
  Age: 83 Year
  Sex: Male
  Weight: 87 kg

DRUGS (11)
  1. METAMIZOL [Concomitant]
     Active Substance: METAMIZOLE SODIUM
     Dosage: IF NECESSARY, TABLETS
     Route: 048
  2. IPRATROPIUM BROMIDE. [Concomitant]
     Active Substance: IPRATROPIUM BROMIDE
     Dosage: 1-0-0-0, DOSIERAEROSOL
     Route: 055
  3. TAMSULOSIN [Concomitant]
     Active Substance: TAMSULOSIN
     Dosage: 1-0-0-0, TABLETTEN
     Route: 048
  4. GEMCITABINE [Suspect]
     Active Substance: GEMCITABINE\GEMCITABINE HYDROCHLORIDE
     Dosage: WEEKLY, INJECTION/INFUSION SOLUTION
     Route: 042
  5. PACLITAXEL. [Suspect]
     Active Substance: PACLITAXEL
     Dosage: WEEKLY, INJECTION/INFUSION SOLUTION
     Route: 042
  6. TELMISARTAN. [Concomitant]
     Active Substance: TELMISARTAN
     Dosage: 1-0-0-0, TABLETTEN
     Route: 048
  7. TELMISARTAN/HYDROCHLOROTHIAZID [Concomitant]
     Active Substance: HYDROCHLOROTHIAZIDE\TELMISARTAN
     Dosage: 40 | 12.5 MG IN DAILY CHANGE WITH TELMISARTAN, 1-0-0-0, TABLETS
     Route: 048
  8. COLECALCIFEROL [Concomitant]
     Active Substance: CHOLECALCIFEROL
     Dosage: 1-0-0-0, TABLETTEN
     Route: 048
  9. METFORMIN/SITAGLIPTIN [Concomitant]
     Active Substance: METFORMIN\SITAGLIPTIN
     Dosage: 850|50 MG, 1-0-1-0, TABLETTEN
     Route: 048
  10. PANTOPRAZOL [Concomitant]
     Active Substance: PANTOPRAZOLE SODIUM
     Dosage: 1-0-0-0, TABLETTEN
     Route: 048
  11. NEBIVOLOL. [Concomitant]
     Active Substance: NEBIVOLOL
     Dosage: 1-0-0-0, TABLETTEN
     Route: 048

REACTIONS (4)
  - Weight decreased [Recovered/Resolved]
  - General physical health deterioration [Recovered/Resolved]
  - Diarrhoea [Recovered/Resolved]
  - Dehydration [Recovered/Resolved]
